FAERS Safety Report 6372839-7 (Version None)
Quarter: 2009Q3

REPORT INFORMATION
  Report Type: 
  Country: None (occurrence: None)
  Receive Date: 20090924
  Receipt Date: 20090603
  Transmission Date: 20100115
  Serious: No
  Sender: FDA-Public Use
  Company Number: US-ASTRAZENECA-2008UW27171

PATIENT
  Sex: Male
  Weight: 86.2 kg

DRUGS (9)
  1. SEROQUEL [Suspect]
     Route: 048
     Dates: start: 20081203, end: 20081203
  2. SEROQUEL [Suspect]
     Route: 048
     Dates: start: 20081204, end: 20081204
  3. SEROQUEL [Suspect]
     Route: 048
     Dates: start: 20081205
  4. NEXIUM [Concomitant]
  5. VITAMIN [Concomitant]
  6. ALLEGRA D 24 HOUR [Concomitant]
  7. GABATENCIN [Concomitant]
  8. ALIGN [Concomitant]
  9. ZOMETA [Concomitant]

REACTIONS (4)
  - CONSTIPATION [None]
  - DYSPNOEA [None]
  - INCORRECT DOSE ADMINISTERED [None]
  - SOMNOLENCE [None]
